FAERS Safety Report 13104431 (Version 1)
Quarter: 2017Q1

REPORT INFORMATION
  Report Type: Spontaneous
  Country: GB (occurrence: GB)
  Receive Date: 20170111
  Receipt Date: 20170111
  Transmission Date: 20170428
  Serious: Yes (Hospitalization)
  Sender: FDA-Public Use
  Company Number: GB-TEVA-727800ACC

PATIENT
  Age: 79 Year
  Sex: Female

DRUGS (4)
  1. WARFARIN [Suspect]
     Active Substance: WARFARIN
     Indication: PULMONARY EMBOLISM
     Dosage: 7MG WEDNESDAYS AND SUNDAYS, 6MG ALL OTHER DAYS
     Route: 048
     Dates: start: 2009, end: 20161107
  2. CYCLIZINE [Concomitant]
     Active Substance: CYCLIZINE
  3. MORPHINE [Concomitant]
     Active Substance: MORPHINE
  4. PARACETAMOL [Concomitant]
     Active Substance: ACETAMINOPHEN

REACTIONS (1)
  - Stoma site haemorrhage [Recovered/Resolved]

NARRATIVE: CASE EVENT DATE: 20161106
